FAERS Safety Report 4675505-9 (Version None)
Quarter: 2005Q2

REPORT INFORMATION
  Report Type: 
  Country: None (occurrence: None)
  Receive Date: 20050525
  Receipt Date: 20050519
  Transmission Date: 20051028
  Serious: Yes (Other)
  Sender: FDA-Public Use
  Company Number: B0381165A

PATIENT

DRUGS (1)
  1. ALBENDAZOLE                   (ALBENDAZOLE) [Suspect]

REACTIONS (1)
  - HEPATOCELLULAR DAMAGE [None]
